FAERS Safety Report 24238750 (Version 1)
Quarter: 2024Q3

REPORT INFORMATION
  Report Type: Spontaneous
  Country: US (occurrence: None)
  Receive Date: 20240821
  Receipt Date: 20240821
  Transmission Date: 20241017
  Serious: Yes (Other)
  Sender: Public
  Company Number: None

PATIENT
  Sex: Female

DRUGS (1)
  1. NATURIUM DEW-GLOW MOISTURIZER SPF 50 [Suspect]
     Active Substance: AVOBENZONE\HOMOSALATE\OCTISALATE
     Indication: Prophylaxis against solar radiation
     Route: 061
     Dates: start: 20240817, end: 20240818

REACTIONS (5)
  - Product complaint [None]
  - Rash [None]
  - Rash [None]
  - Rash [None]
  - Rash papular [None]

NARRATIVE: CASE EVENT DATE: 20240819
